FAERS Safety Report 8297630-6 (Version None)
Quarter: 2012Q2

REPORT INFORMATION
  Report Type: 
  Country: None (occurrence: None)
  Receive Date: 20120419
  Receipt Date: 20120406
  Transmission Date: 20120825
  Serious: Yes (Hospitalization, Other)
  Sender: FDA-Public Use
  Company Number: FR-JNJFOC-20120305048

PATIENT
  Sex: Female

DRUGS (4)
  1. LOVENOX [Concomitant]
     Indication: KNEE ARTHROPLASTY
  2. XARELTO [Suspect]
     Indication: THROMBOSIS PROPHYLAXIS
     Route: 048
     Dates: start: 20120223
  3. XARELTO [Suspect]
     Indication: KNEE ARTHROPLASTY
     Route: 048
     Dates: start: 20120223
  4. LOVENOX [Concomitant]
     Indication: THROMBOSIS PROPHYLAXIS

REACTIONS (1)
  - VENOUS THROMBOSIS LIMB [None]
